FAERS Safety Report 24147775 (Version 1)
Quarter: 2024Q3

REPORT INFORMATION
  Report Type: Spontaneous
  Country: CZ (occurrence: CZ)
  Receive Date: 20240729
  Receipt Date: 20240729
  Transmission Date: 20241017
  Serious: Yes (Other)
  Sender: BAYER
  Company Number: CZ-BAYER-2024A105150

PATIENT
  Age: 65 Year
  Sex: Female

DRUGS (1)
  1. BETAFERON [Suspect]
     Active Substance: INTERFERON BETA-1B
     Indication: Multiple sclerosis
     Dosage: UNK
     Dates: start: 1997

REACTIONS (2)
  - Multiple sclerosis relapse [None]
  - Drug ineffective [None]
